FAERS Safety Report 20501420 (Version 1)
Quarter: 2022Q1

REPORT INFORMATION
  Report Type: Spontaneous
  Country: US (occurrence: US)
  Receive Date: 20220222
  Receipt Date: 20220222
  Transmission Date: 20220423
  Serious: Yes (Death)
  Sender: FDA-Public Use
  Company Number: US-PFIZER INC-202101830185

PATIENT
  Age: 79 Year
  Sex: Female
  Weight: 47.63 kg

DRUGS (1)
  1. VFEND [Suspect]
     Active Substance: VORICONAZOLE
     Indication: Aspergillus infection
     Dosage: 200 MG, 2X/DAY
     Route: 048
     Dates: start: 2021, end: 20220124

REACTIONS (2)
  - COVID-19 [Fatal]
  - Product prescribing error [Unknown]
